FAERS Safety Report 15579546 (Version 5)
Quarter: 2019Q2

REPORT INFORMATION
  Report Type: Spontaneous
  Country: US (occurrence: US)
  Receive Date: 20181102
  Receipt Date: 20190515
  Transmission Date: 20190711
  Serious: Yes (Life-Threatening, Hospitalization, Other)
  Sender: FDA-Public Use
  Company Number: US-VERTEX PHARMACEUTICALS-2018-007913

PATIENT
  Age: 66 Year
  Sex: Male
  Weight: 126 kg

DRUGS (28)
  1. DIGOX [Concomitant]
     Active Substance: DIGOXIN
     Dosage: .25 MG
     Dates: start: 20170901
  2. DIGOX [Concomitant]
     Active Substance: DIGOXIN
     Dosage: .25 MG
     Dates: start: 20180823
  3. TOUJEO [Concomitant]
     Active Substance: INSULIN GLARGINE
     Dosage: 300 U/ML
     Dates: start: 20180214
  4. CARVEDILOL. [Concomitant]
     Active Substance: CARVEDILOL
     Dosage: 6.25 MG
     Dates: start: 20180730
  5. HUMALOG [Concomitant]
     Active Substance: INSULIN LISPRO
     Dosage: 100 MILLILITER
     Dates: start: 20180930
  6. KALYDECO [Suspect]
     Active Substance: IVACAFTOR
     Indication: CYSTIC FIBROSIS
     Dosage: 150 MG, BID
     Route: 048
     Dates: start: 20170901
  7. COUMADIN [Concomitant]
     Active Substance: WARFARIN SODIUM
     Indication: ATRIAL FIBRILLATION
     Dosage: 8 MG, QD
     Dates: start: 2013, end: 20181026
  8. LISINOPRIL. [Concomitant]
     Active Substance: LISINOPRIL
     Dosage: 5 MG
     Dates: start: 20170823
  9. LISINOPRIL. [Concomitant]
     Active Substance: LISINOPRIL
     Dosage: 5 MG
     Dates: start: 20180802
  10. DIGOX [Concomitant]
     Active Substance: DIGOXIN
     Dosage: .25  MG
     Dates: start: 20180822
  11. WARFARIN [Concomitant]
     Active Substance: WARFARIN
     Dosage: 10 MG
     Dates: start: 20171108
  12. XIGDUO XR [Concomitant]
     Active Substance: DAPAGLIFLOZIN PROPANEDIOL\METFORMIN HYDROCHLORIDE
     Dosage: 5/1000 MG
     Dates: start: 20180328
  13. OXYBUTYNIN. [Concomitant]
     Active Substance: OXYBUTYNIN CHLORIDE
  14. ENOXAPARIN [Concomitant]
     Active Substance: ENOXAPARIN
  15. LEVALBUTEROL                       /01419301/ [Concomitant]
     Active Substance: LEVALBUTEROL
     Dosage: UNK
     Dates: start: 20180618
  16. TOUJEO [Concomitant]
     Active Substance: INSULIN GLARGINE
     Dosage: 300 U/ML
     Dates: start: 20181001
  17. LEVALBUTEROL                       /01419301/ [Concomitant]
     Active Substance: LEVALBUTEROL
     Dosage: UNK
     Dates: start: 20180822
  18. TAMSULOSIN [Concomitant]
     Active Substance: TAMSULOSIN
  19. LEVOFLOXACIN. [Concomitant]
     Active Substance: LEVOFLOXACIN
  20. PULMOZYME [Concomitant]
     Active Substance: DORNASE ALFA
  21. LISINOPRIL. [Concomitant]
     Active Substance: LISINOPRIL
     Dosage: 5  MG
     Dates: start: 20180809
  22. CARVEDILOL. [Concomitant]
     Active Substance: CARVEDILOL
     Dosage: 6.25 MG
     Dates: start: 20180729
  23. LINEZOLID. [Concomitant]
     Active Substance: LINEZOLID
  24. LOVENOX [Suspect]
     Active Substance: ENOXAPARIN SODIUM
     Indication: PRODUCT USED FOR UNKNOWN INDICATION
     Dosage: 120 MG, BID
     Route: 058
     Dates: start: 20181027, end: 20181028
  25. CEFPODOXIME [Concomitant]
     Active Substance: CEFPODOXIME
     Dosage: 200 MG
     Dates: start: 20161018
  26. LEVALBUTEROL                       /01419301/ [Concomitant]
     Active Substance: LEVALBUTEROL
     Dosage: UNK
     Dates: start: 20180823
  27. METFORMIN [Concomitant]
     Active Substance: METFORMIN HYDROCHLORIDE
     Dosage: 500 MG
     Dates: start: 20180810
  28. POTASSIUM CITRATE. [Concomitant]
     Active Substance: POTASSIUM CITRATE

REACTIONS (7)
  - Pneumonia [Unknown]
  - Shock [Unknown]
  - Nephrolithiasis [Not Recovered/Not Resolved]
  - Surgery [Unknown]
  - Haematuria [Not Recovered/Not Resolved]
  - Sepsis [Unknown]
  - Ear infection [Not Recovered/Not Resolved]

NARRATIVE: CASE EVENT DATE: 2018
